FAERS Safety Report 6915819-2 (Version None)
Quarter: 2010Q3

REPORT INFORMATION
  Report Type: 
  Country: None (occurrence: None)
  Receive Date: 20100810
  Receipt Date: 20100511
  Transmission Date: 20110219
  Serious: No
  Sender: FDA-Public Use
  Company Number: A0859143A

PATIENT
  Age: 32 Year
  Sex: Female

DRUGS (5)
  1. PAXIL [Suspect]
     Indication: DEPRESSION
     Dosage: 20MG PER DAY
     Route: 048
  2. WELLBUTRIN SR [Suspect]
     Indication: DEPRESSION
     Dosage: 150MG TWICE PER DAY
     Route: 048
  3. BUSPIRONE HCL [Concomitant]
  4. CLONAZEPAM [Concomitant]
  5. ORAL CONTRACEPTIVES [Concomitant]

REACTIONS (4)
  - MOVEMENT DISORDER [None]
  - MYOCLONUS [None]
  - TARDIVE DYSKINESIA [None]
  - THERAPEUTIC RESPONSE DECREASED [None]
